FAERS Safety Report 11394109 (Version 2)
Quarter: 2015Q3

REPORT INFORMATION
  Report Type: Report from Study
  Country: FR (occurrence: FR)
  Receive Date: 20150819
  Receipt Date: 20150831
  Transmission Date: 20151125
  Serious: Yes (Death, Hospitalization)
  Sender: FDA-Public Use
  Company Number: PHHY2015FR062483

PATIENT
  Age: 75 Year
  Sex: Female
  Weight: 59.2 kg

DRUGS (2)
  1. AFINITOR [Suspect]
     Active Substance: EVEROLIMUS
     Indication: BREAST CANCER
     Dosage: 10 MG, UNK
     Route: 048
     Dates: start: 20150414
  2. AROMASINE [Suspect]
     Active Substance: EXEMESTANE
     Indication: BREAST CANCER
     Dosage: 25 MG, QD
     Route: 065
     Dates: start: 20150414

REACTIONS (16)
  - Hypercalcaemia [Unknown]
  - Subdural haematoma [Fatal]
  - Brain herniation [Fatal]
  - Coma [Fatal]
  - Anaemia [Not Recovered/Not Resolved]
  - Thrombocytopenia [Unknown]
  - Vitamin D decreased [Unknown]
  - Brain oedema [Fatal]
  - Epilepsy [Fatal]
  - Decreased appetite [Unknown]
  - Hypothyroidism [Unknown]
  - Blood glucose abnormal [Unknown]
  - General physical health deterioration [Unknown]
  - Asthenia [Unknown]
  - Osteolysis [Unknown]
  - Thyroxine free decreased [Unknown]

NARRATIVE: CASE EVENT DATE: 20150423
